FAERS Safety Report 4989340-5 (Version None)
Quarter: 2006Q2

REPORT INFORMATION
  Report Type: 
  Country: None (occurrence: None)
  Receive Date: 20060426
  Receipt Date: 20060414
  Transmission Date: 20061013
  Serious: Yes (Death, Hospitalization)
  Sender: FDA-Public Use
  Company Number: 2005US001514

PATIENT
  Age: 73 Year
  Sex: Male

DRUGS (23)
  1. PROGRAF [Suspect]
     Indication: PROPHYLAXIS AGAINST TRANSPLANT REJECTION
     Dosage: 1 MG, BID; ORAL
     Route: 048
     Dates: start: 20050108, end: 20050921
  2. MYCOPHENOLATE MOFETIL [Suspect]
     Indication: PROPHYLAXIS AGAINST TRANSPLANT REJECTION
     Dosage: 1500 MG, BID; ORAL
     Route: 048
     Dates: start: 20050108, end: 20050921
  3. CORTICOSTEROIDS [Suspect]
     Indication: PROPHYLAXIS AGAINST TRANSPLANT REJECTION
  4. LOPRESSOR [Concomitant]
  5. LASIX [Concomitant]
  6. AMIODARONE HYDROCHLORIDE [Concomitant]
  7. RENAGEL [Concomitant]
  8. COLCHICINE [Concomitant]
  9. VALCYTE [Concomitant]
  10. BACTRIM [Concomitant]
  11. FOLIC ACID [Concomitant]
  12. MULTIVITAMINS (ERGOCALCIFEROL, ASCORBIC ACID, PANTHENOL, NICOTINAMIDE, [Concomitant]
  13. PRILOSEC [Concomitant]
  14. EPOGEN [Concomitant]
  15. ARANESP [Concomitant]
  16. ALBUTEROL SULFATE AUTOHALER [Concomitant]
  17. NOVOLIN N [Concomitant]
  18. ASA ARTHRITIS STRENGTH ASPIRIN [Concomitant]
  19. PLAVIX [Concomitant]
  20. MYCOSTATIN [Concomitant]
  21. K-DUR 10 [Concomitant]
  22. FLAGYL [Concomitant]
  23. LEVAQUIN [Concomitant]

REACTIONS (15)
  - AORTIC VALVE DISEASE [None]
  - AORTIC VALVE STENOSIS [None]
  - BACTERAEMIA [None]
  - CARDIAC FAILURE CONGESTIVE [None]
  - CARDIAC VALVE ABSCESS [None]
  - CARDIAC VALVE VEGETATION [None]
  - CARDIOGENIC SHOCK [None]
  - CORONARY ARTERY SURGERY [None]
  - ENDOCARDITIS [None]
  - HAEMODYNAMIC INSTABILITY [None]
  - MYOCARDIAC ABSCESS [None]
  - PLEURAL EFFUSION [None]
  - SEPSIS [None]
  - THERAPY NON-RESPONDER [None]
  - TRICUSPID VALVE DISEASE [None]
